FAERS Safety Report 9752941 (Version 3)
Quarter: 2014Q1

REPORT INFORMATION
  Report Type: Spontaneous
  Country: TR (occurrence: TR)
  Receive Date: 20131213
  Receipt Date: 20140221
  Transmission Date: 20141002
  Serious: Yes (Hospitalization, Other)
  Sender: FDA-Public Use
  Company Number: TR-BAYER-2013-149095

PATIENT
  Age: 49 Year
  Sex: Male
  Weight: 95 kg

DRUGS (7)
  1. CORASPIN [Suspect]
     Dosage: 100 MG, UNK
  2. DIGOXIN [Suspect]
     Indication: ATRIAL FIBRILLATION
     Dosage: 200 MG, UNK
  3. ECOPIRIN [Suspect]
  4. CORDARONE [Suspect]
  5. BELOC [Suspect]
     Indication: ATRIAL FIBRILLATION
     Dosage: 50 MG, UNK
  6. INSULIN [Concomitant]
     Indication: DIABETES MELLITUS
  7. MONODUR [Concomitant]

REACTIONS (7)
  - Cardiac pacemaker insertion [None]
  - Intestinal haemorrhage [Not Recovered/Not Resolved]
  - Arrhythmia [None]
  - Cardiac failure [None]
  - Small intestinal haemorrhage [None]
  - Convulsion [None]
  - Paraplegia [None]
